FAERS Safety Report 7608882-7 (Version None)
Quarter: 2011Q3

REPORT INFORMATION
  Report Type: 
  Country: None (occurrence: None)
  Receive Date: 20110714
  Receipt Date: 20110713
  Transmission Date: 20111222
  Serious: No
  Sender: FDA-Public Use
  Company Number: US-PFIZER INC-2011158961

PATIENT
  Sex: Female
  Weight: 67.12 kg

DRUGS (11)
  1. CYMBALTA [Concomitant]
     Dosage: UNK
  2. MAXZIDE [Concomitant]
     Dosage: UNK
  3. LIDOCAINE [Concomitant]
     Dosage: UNK
  4. KETOPROFEN [Concomitant]
     Dosage: UNK
  5. LYRICA [Suspect]
     Indication: NECK PAIN
     Dosage: 150 MG, 2X/DAY
     Route: 048
  6. FLUTICASONE [Concomitant]
     Dosage: UNK
  7. LISINOPRIL [Concomitant]
     Dosage: UNK
  8. LYRICA [Suspect]
     Indication: FIBROMYALGIA
  9. HYDROCODONE [Concomitant]
     Dosage: UNK
  10. MUCINEX [Concomitant]
     Dosage: UNK
  11. GABAPENTIN [Concomitant]
     Dosage: UNK

REACTIONS (2)
  - HEAD DISCOMFORT [None]
  - PARAESTHESIA [None]
